FAERS Safety Report 7293302-5 (Version None)
Quarter: 2011Q1

REPORT INFORMATION
  Report Type: 
  Country: None (occurrence: None)
  Receive Date: 20110215
  Receipt Date: 20110118
  Transmission Date: 20110831
  Serious: Yes (Disabling)
  Sender: FDA-Public Use
  Company Number: FR-B.I. PHARMACEUTICALS,INC./RIDGEFIELD-2010-FF-01010FF

PATIENT
  Sex: Female
  Weight: 51 kg

DRUGS (4)
  1. MICARDIS [Suspect]
     Indication: HYPERTENSION
     Dosage: 80MG/12.5MG
     Route: 048
  2. ASPEGIC 325 [Concomitant]
  3. IMIGRANE [Concomitant]
     Dosage: 6 WITHIN ONE MONTH
     Route: 048
  4. AMLODIPINE [Concomitant]
     Dosage: 5 MG
     Route: 048
     Dates: start: 20100101

REACTIONS (3)
  - VISUAL ACUITY REDUCED [None]
  - VISION BLURRED [None]
  - LOSS OF VISUAL CONTRAST SENSITIVITY [None]
